FAERS Safety Report 6163398-2 (Version None)
Quarter: 2009Q2

REPORT INFORMATION
  Report Type: 
  Country: None (occurrence: None)
  Receive Date: 20090422
  Receipt Date: 20090413
  Transmission Date: 20091009
  Serious: Yes (Death, Hospitalization, Other)
  Sender: FDA-Public Use
  Company Number: PHHY2009JP13878

PATIENT
  Age: 30 Year
  Sex: Male

DRUGS (7)
  1. CARBAMAZEPINE [Suspect]
     Indication: MYOCLONIC EPILEPSY
  2. CLONAZEPAM [Suspect]
     Indication: MYOCLONIC EPILEPSY
  3. VALPROIC ACID [Concomitant]
     Indication: MYOCLONIC EPILEPSY
  4. ZONISAMIDE [Concomitant]
     Indication: MYOCLONIC EPILEPSY
  5. CLORAZEPATE DIPOTASSIUM [Concomitant]
     Indication: MYOCLONIC EPILEPSY
  6. DIAZEPAM [Concomitant]
     Indication: MYOCLONIC EPILEPSY
  7. ACETAZOLAMIDE [Concomitant]
     Indication: MYOCLONIC EPILEPSY

REACTIONS (7)
  - ATAXIA [None]
  - DEATH [None]
  - ELECTROENCEPHALOGRAM ABNORMAL [None]
  - LIVER DISORDER [None]
  - NAUSEA [None]
  - SOMNOLENCE [None]
  - STATUS EPILEPTICUS [None]
